FAERS Safety Report 9512768 (Version 1)
Quarter: 2013Q1

REPORT INFORMATION
  Report Type: Spontaneous
  Country: US (occurrence: None)
  Receive Date: 20130305
  Receipt Date: 20130305
  Transmission Date: 20140127
  Serious: Yes (Other)
  Sender: FDA-Public Use
  Company Number: 163-21880-12100894

PATIENT
  Age: 75 Year
  Sex: Male
  Weight: 63.5 kg

DRUGS (4)
  1. REVLIMID [Suspect]
     Indication: PLASMA CELL MYELOMA
     Dosage: 21 IN 21 D
     Route: 048
     Dates: start: 20120918
  2. LYRICA (PREGABALIN) (UNKNOWN) [Concomitant]
  3. LORTAB (VICODIN) (UNKNOWN) [Concomitant]
  4. NORTRIPTYLINE (NORTRIPTYLINE) (UNKNOWN) [Concomitant]

REACTIONS (6)
  - Gastrointestinal tract irritation [None]
  - Nausea [None]
  - Decreased appetite [None]
  - Diarrhoea [None]
  - Muscle spasms [None]
  - Rash [None]
